FAERS Safety Report 5908594-1 (Version None)
Quarter: 2008Q4

REPORT INFORMATION
  Report Type: 
  Country: None (occurrence: None)
  Receive Date: 20081001
  Receipt Date: 20080922
  Transmission Date: 20090506
  Serious: Yes (Other)
  Sender: FDA-Public Use
  Company Number: OSCN-PR-0809S-0544

PATIENT
  Sex: Male

DRUGS (3)
  1. OMNISCAN [Suspect]
     Indication: RENAL TRANSPLANT
     Dosage: , SINGLE DOSE, I.V.
     Route: 042
     Dates: start: 20060424, end: 20060424
  2. OMNISCAN [Suspect]
     Indication: RENAL TRANSPLANT
     Dosage: , SINGLE DOSE, I.V.
     Route: 042
     Dates: start: 20060905, end: 20060905
  3. OMNISCAN [Suspect]
     Indication: RENAL TRANSPLANT
     Dosage: , SINGLE DOSE, I.V.
     Route: 042
     Dates: start: 20060906, end: 20060906

REACTIONS (2)
  - CARDIAC DISORDER [None]
  - NEPHROGENIC SYSTEMIC FIBROSIS [None]
